FAERS Safety Report 9997109 (Version 1)
Quarter: 2014Q1

REPORT INFORMATION
  Report Type: Spontaneous
  Country: US (occurrence: None)
  Receive Date: 20140228
  Receipt Date: 20140228
  Transmission Date: 20141002
  Serious: Yes (Other)
  Sender: FDA-Public Use
  Company Number: 368597

PATIENT
  Sex: Female

DRUGS (1)
  1. PRANDIN [Suspect]
     Indication: TYPE 2 DIABETES MELLITUS
     Dosage: UNK, ORAL
     Route: 048

REACTIONS (2)
  - Blood glucose increased [None]
  - Hypertension [None]
